FAERS Safety Report 20145978 (Version 1)
Quarter: 2021Q4

REPORT INFORMATION
  Report Type: Spontaneous
  Country: US (occurrence: None)
  Receive Date: 20211203
  Receipt Date: 20211203
  Transmission Date: 20220303
  Serious: No
  Sender: FDA-Public Use
  Company Number: None

PATIENT
  Sex: Female

DRUGS (2)
  1. HUMIRA [Suspect]
     Active Substance: ADALIMUMAB
     Indication: Polyarthritis
     Dosage: FREQUENCY : EVERY OTHER WEEK;?
     Route: 058
     Dates: start: 20211102
  2. HUMIRA [Suspect]
     Active Substance: ADALIMUMAB
     Indication: Uterine inflammation

REACTIONS (4)
  - Oral herpes [None]
  - Sinus congestion [None]
  - Cough [None]
  - Hypoaesthesia [None]
